FAERS Safety Report 9918216 (Version 1)
Quarter: 2014Q1

REPORT INFORMATION
  Report Type: Spontaneous
  Country: FR (occurrence: FR)
  Receive Date: 20140223
  Receipt Date: 20140223
  Transmission Date: 20141002
  Serious: Yes (Hospitalization)
  Sender: FDA-Public Use
  Company Number: FR-ROCHE-1351721

PATIENT
  Age: 38 Year
  Sex: Male

DRUGS (6)
  1. OMALIZUMAB [Suspect]
     Indication: ASTHMA
     Route: 065
  2. OMALIZUMAB [Suspect]
     Dosage: RESTARTED
     Route: 065
  3. FLUTICASONE [Suspect]
     Indication: ASTHMA
     Route: 065
  4. FLUTICASONE [Suspect]
     Indication: EOSINOPHILIA
  5. SALMETEROL [Suspect]
     Indication: ASTHMA
     Route: 065
  6. SALMETEROL [Suspect]
     Indication: EOSINOPHILIA

REACTIONS (3)
  - Sleep disorder [Unknown]
  - Pulmonary function test decreased [Unknown]
  - Therapeutic response decreased [Unknown]
